FAERS Safety Report 6096113-1 (Version None)
Quarter: 2009Q1

REPORT INFORMATION
  Report Type: 
  Country: None (occurrence: None)
  Receive Date: 20090227
  Receipt Date: 20080926
  Transmission Date: 20090719
  Serious: No
  Sender: FDA-Public Use
  Company Number: A0745997A

PATIENT
  Age: 26 Year
  Sex: Female
  Weight: 124.5 kg

DRUGS (1)
  1. LAMICTAL [Suspect]
     Indication: DRUG USE FOR UNKNOWN INDICATION
     Dosage: 12.5MG PER DAY
     Dates: start: 20080805, end: 20080826

REACTIONS (2)
  - HOT FLUSH [None]
  - NONSPECIFIC REACTION [None]
